FAERS Safety Report 14744998 (Version 1)
Quarter: 2018Q2

REPORT INFORMATION
  Report Type: Spontaneous
  Country: US (occurrence: US)
  Receive Date: 20180405
  Receipt Date: 20180405
  Transmission Date: 20180711
  Serious: Yes (Other)
  Sender: FDA-Public Use
  Company Number: None

PATIENT
  Age: 29 Year
  Sex: Female
  Weight: 63 kg

DRUGS (6)
  1. CLARITIN [Concomitant]
     Active Substance: LORATADINE
  2. CVS CAPSAICIN [Suspect]
     Active Substance: CAPSAICIN
     Indication: ARTHRALGIA
     Dosage: ?          QUANTITY:1 SMALL AMOUNT;?
     Route: 061
  3. ORAL CONTRACEPTIVE [Concomitant]
     Active Substance: UNSPECIFIED INGREDIENT
  4. ALLERGY IMMUNOTHERAPY [Concomitant]
  5. SERTRALINE [Concomitant]
     Active Substance: SERTRALINE HYDROCHLORIDE
  6. FLONASE [Concomitant]
     Active Substance: FLUTICASONE PROPIONATE

REACTIONS (2)
  - Pain of skin [None]
  - Burns first degree [None]

NARRATIVE: CASE EVENT DATE: 20180404
